FAERS Safety Report 20920507 (Version 3)
Quarter: 2022Q3

REPORT INFORMATION
  Report Type: Spontaneous
  Country: JP (occurrence: JP)
  Receive Date: 20220606
  Receipt Date: 20220715
  Transmission Date: 20221026
  Serious: No
  Sender: FDA-Public Use
  Company Number: JP-ORGANON-O2206JPN000456

PATIENT
  Age: 78 Year
  Sex: Female

DRUGS (7)
  1. ALENDRONATE SODIUM [Suspect]
     Active Substance: ALENDRONATE SODIUM
     Indication: Osteoporosis
     Dosage: 35 MILLIGRAM PER WEEK
     Route: 048
     Dates: start: 20220524, end: 20220524
  2. SALAGEN [Concomitant]
     Active Substance: PILOCARPINE HYDROCHLORIDE
     Dosage: UNK
     Route: 048
     Dates: start: 20220520
  3. UMECLIDINIUM BROMIDE\VILANTEROL TRIFENATATE [Concomitant]
     Active Substance: UMECLIDINIUM BROMIDE\VILANTEROL TRIFENATATE
     Indication: Asthma
     Dosage: UNK
     Route: 048
     Dates: start: 20220520
  4. HANGEKOBOKUTO [MAGNOLIA SPP. BARK;PERILLA FRUTESCENS VAR. CRISPA HERB; [Concomitant]
     Dosage: UNK
     Route: 048
     Dates: start: 20220520
  5. DEQUALINIUM CHLORIDE [Concomitant]
     Active Substance: DEQUALINIUM CHLORIDE
     Dosage: UNK
     Route: 048
     Dates: start: 20220520
  6. SODIUM GUALENATE [Concomitant]
     Active Substance: SODIUM GUALENATE
     Indication: Sjogren^s syndrome
     Dosage: UNK
     Route: 048
     Dates: start: 20220520
  7. CEFCAPENE PIVOXIL HYDROCHLORIDE HYDRATE [Concomitant]
     Active Substance: CEFCAPENE PIVOXIL HYDROCHLORIDE HYDRATE
     Dosage: UNK
     Route: 048
     Dates: start: 20220520

REACTIONS (3)
  - Dyspnoea [Recovered/Resolved]
  - Altered state of consciousness [Recovered/Resolved]
  - Oral pain [Unknown]

NARRATIVE: CASE EVENT DATE: 20220524
